FAERS Safety Report 8045635-2 (Version None)
Quarter: 2012Q1

REPORT INFORMATION
  Report Type: 
  Country: None (occurrence: None)
  Receive Date: 20120113
  Receipt Date: 20120110
  Transmission Date: 20120608
  Serious: Yes (Hospitalization)
  Sender: FDA-Public Use
  Company Number: US-CELGENEUS-163-21660-12010429

PATIENT
  Sex: Female
  Weight: 60.5 kg

DRUGS (21)
  1. LANTUS [Concomitant]
     Route: 065
  2. POLYETHYLENE [Concomitant]
     Dosage: 17 GRAM
     Route: 048
  3. ATIVAN [Concomitant]
     Indication: NAUSEA
     Route: 041
  4. CELEXA [Concomitant]
     Dosage: 40 MILLIGRAM
     Route: 048
  5. INSULIN LISPRO [Concomitant]
     Dosage: 1-12 UNIT/0
     Route: 058
  6. ONDANSETRON HYDROCHLORIDE [Concomitant]
     Route: 065
  7. BEVACIZUMAB [Suspect]
     Indication: BREAST CANCER
     Dosage: 608 MILLIGRAM
     Route: 065
  8. AMPICILLIN [Concomitant]
     Dosage: 100 MILLILITER
     Route: 041
  9. PANTOPRAZOLE [Concomitant]
     Dosage: 40 MILLIGRAM
     Route: 048
  10. ABRAXANE [Suspect]
     Indication: BREAST CANCER
     Dosage: 167 MILLIGRAM
     Route: 041
  11. NEXIUM [Concomitant]
     Route: 065
  12. WELLBUTRIN [Concomitant]
     Dosage: 75
     Route: 048
  13. CEFTRIAXONE [Concomitant]
     Dosage: 2GM/100ML
     Route: 041
  14. CARBOPLATIN [Suspect]
     Indication: BREAST CANCER
     Dosage: 248 MILLIGRAM
     Route: 065
  15. INSULIN [Concomitant]
     Dosage: SLIDING SCALE
     Route: 065
  16. FONDAPARINUX SODIUM [Concomitant]
     Dosage: 2.5MG/0.5
     Route: 058
  17. INSULIN GLARGINE [Concomitant]
     Dosage: 12 UNIT/0.1
     Route: 058
  18. HYDROMORPHONE HCL [Concomitant]
     Route: 065
  19. VANCOMYCIN HCL [Concomitant]
     Dosage: 1250MG/250
     Route: 041
  20. OXYCODONE HCL [Concomitant]
     Route: 065
  21. ATIVAN [Concomitant]
     Indication: VOMITING

REACTIONS (1)
  - METASTASES TO MENINGES [None]
